FAERS Safety Report 9226789 (Version 1)
Quarter: 2013Q2

REPORT INFORMATION
  Report Type: Spontaneous
  Country: RU (occurrence: RU)
  Receive Date: 20130412
  Receipt Date: 20130412
  Transmission Date: 20140414
  Serious: Yes (Other)
  Sender: FDA-Public Use
  Company Number: RU-BAYER-2013-043105

PATIENT
  Sex: Female

DRUGS (2)
  1. YARINA [Suspect]
     Indication: CONTRACEPTION
     Dosage: UNK
     Dates: start: 201302
  2. PHENAZEPAM [Concomitant]

REACTIONS (3)
  - Chlamydial infection [None]
  - Nausea [None]
  - Drug dose omission [None]
